FAERS Safety Report 8093780-8 (Version None)
Quarter: 2012Q1

REPORT INFORMATION
  Report Type: 
  Country: None (occurrence: None)
  Receive Date: 20120131
  Receipt Date: 20120125
  Transmission Date: 20120608
  Serious: Yes (Hospitalization, Other)
  Sender: FDA-Public Use
  Company Number: US-SANOFI-AVENTIS-2012SA005321

PATIENT
  Age: 63 Year
  Sex: Female

DRUGS (2)
  1. ELOXATIN [Suspect]
     Route: 042
  2. ELOXATIN [Suspect]
     Dosage: 85MG/M2
     Route: 042
     Dates: start: 20120112, end: 20120112

REACTIONS (9)
  - CARDIAC ARREST [None]
  - STRIDOR [None]
  - DYSPNOEA [None]
  - FACIAL PARESIS [None]
  - VENTRICULAR FIBRILLATION [None]
  - EYELID PTOSIS [None]
  - PALLOR [None]
  - HYPERSENSITIVITY [None]
  - HYPERTENSION [None]
